FAERS Safety Report 18707184 (Version 1)
Quarter: 2021Q1

REPORT INFORMATION
  Report Type: Spontaneous
  Country: US (occurrence: US)
  Receive Date: 20210106
  Receipt Date: 20210106
  Transmission Date: 20210419
  Serious: No
  Sender: FDA-Public Use
  Company Number: US-EISAI MEDICAL RESEARCH-EC-2020-085918

PATIENT
  Age: 66 Year
  Sex: Male

DRUGS (2)
  1. DAYVIGO [Suspect]
     Active Substance: LEMBOREXANT
     Route: 048
     Dates: start: 202012, end: 202012
  2. DAYVIGO [Suspect]
     Active Substance: LEMBOREXANT
     Indication: INSOMNIA
     Route: 048
     Dates: start: 202012, end: 202012

REACTIONS (4)
  - Sensory disturbance [Unknown]
  - Drug ineffective [Unknown]
  - Abnormal dreams [Unknown]
  - Sleep paralysis [Unknown]

NARRATIVE: CASE EVENT DATE: 202012
